FAERS Safety Report 5237838-7 (Version None)
Quarter: 2007Q1

REPORT INFORMATION
  Report Type: 
  Country: None (occurrence: None)
  Receive Date: 20070214
  Receipt Date: 20070202
  Transmission Date: 20070707
  Serious: Yes (Other)
  Sender: FDA-Public Use
  Company Number: US-ELI_LILLY_AND_COMPANY-US200702000700

PATIENT
  Sex: Female

DRUGS (2)
  1. FORTEO [Suspect]
     Indication: OSTEOPOROSIS
     Dosage: UNK D/F, UNK
     Dates: start: 20060401
  2. PREDNISONE [Concomitant]
     Dosage: 5 MG, UNK

REACTIONS (4)
  - CONTUSION [None]
  - FALL [None]
  - LIGAMENT INJURY [None]
  - LOSS OF CONSCIOUSNESS [None]
